FAERS Safety Report 17151817 (Version 1)
Quarter: 2019Q4

REPORT INFORMATION
  Report Type: Spontaneous
  Country: JP (occurrence: JP)
  Receive Date: 20191213
  Receipt Date: 20191213
  Transmission Date: 20200122
  Serious: Yes (Other)
  Sender: FDA-Public Use
  Company Number: JP-PFIZER INC-2019505401

PATIENT
  Age: 46 Year
  Sex: Male

DRUGS (5)
  1. EFFEXOR [Suspect]
     Active Substance: VENLAFAXINE HYDROCHLORIDE
     Dosage: 150 MG, 1X/DAY
     Dates: start: 20190820
  2. EFFEXOR [Suspect]
     Active Substance: VENLAFAXINE HYDROCHLORIDE
     Indication: DEPRESSION
     Dosage: 37.5 MG, 1X/DAY
     Dates: start: 20190723
  3. EFFEXOR [Suspect]
     Active Substance: VENLAFAXINE HYDROCHLORIDE
     Dosage: 75 MG,1X/DAY
     Dates: start: 20190730
  4. BELSOMRA [Suspect]
     Active Substance: SUVOREXANT
     Dosage: UNK UNK, AS NEEDED
     Route: 048
  5. AMOBAN [Suspect]
     Active Substance: ZOPICLONE
     Dosage: UNK UNK, AS NEEDED
     Route: 048

REACTIONS (1)
  - Irritability [Recovering/Resolving]

NARRATIVE: CASE EVENT DATE: 201910
